FAERS Safety Report 25445803 (Version 1)
Quarter: 2025Q2

REPORT INFORMATION
  Report Type: Spontaneous
  Country: US (occurrence: None)
  Receive Date: 20250617
  Receipt Date: 20250617
  Transmission Date: 20250717
  Serious: Yes (Disabling)
  Sender: FDA-CTU
  Company Number: None

PATIENT
  Age: 26 Year
  Sex: Male
  Weight: 94.5 kg

DRUGS (2)
  1. HALOPERIDOL [Suspect]
     Active Substance: HALOPERIDOL
     Indication: Anxiety
     Route: 030
     Dates: start: 20230912, end: 20230912
  2. Viiybryd Wellbutrin Clonazepam Clonidine ER [Concomitant]

REACTIONS (4)
  - Sleep disorder [None]
  - Akathisia [None]
  - Restlessness [None]
  - Impaired quality of life [None]

NARRATIVE: CASE EVENT DATE: 20230912
